APPROVED DRUG PRODUCT: ISOPROTERENOL HYDROCHLORIDE
Active Ingredient: ISOPROTERENOL HYDROCHLORIDE
Strength: 0.2MG/ML
Dosage Form/Route: INJECTABLE;INJECTION
Application: A214775 | Product #001
Applicant: AMERICAN REGENT INC
Approved: Oct 19, 2022 | RLD: No | RS: No | Type: DISCN